FAERS Safety Report 6102318-3 (Version None)
Quarter: 2009Q1

REPORT INFORMATION
  Report Type: 
  Country: None (occurrence: None)
  Receive Date: 20090304
  Receipt Date: 20090222
  Transmission Date: 20090719
  Serious: Yes (Hospitalization, Other)
  Sender: FDA-Public Use
  Company Number: NL-ABBOTT-09P-114-0502324-00

PATIENT
  Sex: Female
  Weight: 58 kg

DRUGS (2)
  1. LUCRIN PDS DEPOT [Suspect]
     Indication: ENDOMETRIOSIS
     Route: 058
     Dates: start: 20080418, end: 20080716
  2. LUCRIN PDS DEPOT [Suspect]
     Route: 058
     Dates: start: 20081210, end: 20090216

REACTIONS (5)
  - ARTHRALGIA [None]
  - BURNING SENSATION [None]
  - ENDOMETRIOSIS [None]
  - JOINT CREPITATION [None]
  - JOINT STIFFNESS [None]
